FAERS Safety Report 12675813 (Version 1)
Quarter: 2016Q3

REPORT INFORMATION
  Report Type: Spontaneous
  Country: US (occurrence: None)
  Receive Date: 20160822
  Receipt Date: 20160822
  Transmission Date: 20161109
  Serious: Yes (Other)
  Sender: FDA-Public Use
  Company Number: None

PATIENT
  Age: 71 Year
  Sex: Female
  Weight: 68.49 kg

DRUGS (5)
  1. VITAMIN B COMPLEX [Concomitant]
     Active Substance: CYANOCOBALAMIN\DEXPANTHENOL\NIACINAMIDE\PYRIDOXINE HYDROCHLORIDE\RIBOFLAVIN 5^-PHOSPHATE SODIUM\THIAMINE HYDROCHLORIDE\VITAMIN B COMPLEX
  2. TRAMADOL. [Concomitant]
     Active Substance: TRAMADOL
  3. CIPROFLOXIN [Suspect]
     Active Substance: CIPROFLOXACIN
     Indication: DIVERTICULITIS
     Route: 048
  4. MAG [Concomitant]
  5. CHONDROITIN GLUCOSAMINE HA COMPLEX [Concomitant]

REACTIONS (5)
  - Pain [None]
  - Tendon pain [None]
  - Activities of daily living impaired [None]
  - Asthenia [None]
  - Myalgia [None]

NARRATIVE: CASE EVENT DATE: 20140114
